FAERS Safety Report 20891946 (Version 1)
Quarter: 2022Q2

REPORT INFORMATION
  Report Type: Report from Study
  Country: DE (occurrence: DE)
  Receive Date: 20220530
  Receipt Date: 20220530
  Transmission Date: 20220721
  Serious: Yes (Hospitalization)
  Sender: FDA-Public Use
  Company Number: DE-CELGENE-DEU-20220303555

PATIENT
  Age: 52 Year
  Sex: Female
  Weight: 60 kg

DRUGS (9)
  1. AZACITIDINE [Suspect]
     Active Substance: AZACITIDINE
     Indication: Ductal adenocarcinoma of pancreas
     Dosage: 516 MILLIGRAM
     Route: 058
     Dates: start: 20220117
  2. AZACITIDINE [Suspect]
     Active Substance: AZACITIDINE
     Dosage: 1248 MILLIGRAM
     Route: 058
     Dates: start: 20220225
  3. AZACITIDINE [Suspect]
     Active Substance: AZACITIDINE
     Dosage: 30 MILLIGRAM/SQ. METER
     Route: 058
     Dates: start: 20220225
  4. PACLITAXEL [Suspect]
     Active Substance: PACLITAXEL
     Indication: Ductal adenocarcinoma of pancreas
     Dosage: 215 MILLIGRAM
     Route: 042
     Dates: start: 20220125
  5. PACLITAXEL [Suspect]
     Active Substance: PACLITAXEL
     Dosage: 160 MILLIGRAM
     Route: 042
     Dates: start: 20220301
  6. PACLITAXEL [Suspect]
     Active Substance: PACLITAXEL
     Dosage: 125 MILLIGRAM/SQ. METER
     Route: 042
     Dates: start: 20220301
  7. GEMCITABINE [Suspect]
     Active Substance: GEMCITABINE
     Indication: Ductal adenocarcinoma of pancreas
     Dosage: 1720 MILLIGRAM
     Route: 042
     Dates: start: 20220125
  8. GEMCITABINE [Suspect]
     Active Substance: GEMCITABINE
     Dosage: 1283 MILLIGRAM
     Route: 042
     Dates: start: 20220301
  9. GEMCITABINE [Suspect]
     Active Substance: GEMCITABINE
     Dosage: 10 MILLIGRAM/SQ. METER
     Route: 042
     Dates: start: 20220301

REACTIONS (1)
  - Gastric disorder [Recovered/Resolved with Sequelae]

NARRATIVE: CASE EVENT DATE: 20220221
